FAERS Safety Report 8173698-2 (Version None)
Quarter: 2012Q1

REPORT INFORMATION
  Report Type: 
  Country: None (occurrence: None)
  Receive Date: 20120229
  Receipt Date: 20120221
  Transmission Date: 20120608
  Serious: Yes (Other)
  Sender: FDA-Public Use
  Company Number: US-ACTELION-A-US2011-49638

PATIENT

DRUGS (3)
  1. PROCRIT [Concomitant]
  2. CIALIS [Concomitant]
  3. TRACLEER [Suspect]
     Indication: PULMONARY ARTERIAL HYPERTENSION
     Dosage: UNK
     Route: 048
     Dates: start: 20110510

REACTIONS (14)
  - FLUID RETENTION [None]
  - NASAL CONGESTION [None]
  - MUSCLE SPASMS [None]
  - MUSCULOSKELETAL STIFFNESS [None]
  - OEDEMA [None]
  - HEADACHE [None]
  - OEDEMA PERIPHERAL [None]
  - WEIGHT INCREASED [None]
  - EYE PAIN [None]
  - DYSPNOEA [None]
  - BACK PAIN [None]
  - LACRIMATION INCREASED [None]
  - NEOPLASM MALIGNANT [None]
  - MALAISE [None]
